FAERS Safety Report 22609111 (Version 1)
Quarter: 2023Q2

REPORT INFORMATION
  Report Type: Spontaneous
  Country: US (occurrence: None)
  Receive Date: 20230615
  Receipt Date: 20230615
  Transmission Date: 20230721
  Serious: Yes (Hospitalization)
  Sender: FDA-Public Use
  Company Number: None

PATIENT
  Age: 59 Year
  Sex: Male
  Weight: 103 kg

DRUGS (2)
  1. RITUXIMAB-PVVR [Suspect]
     Active Substance: RITUXIMAB-PVVR
     Indication: Mantle cell lymphoma
     Route: 041
     Dates: start: 20230606, end: 20230606
  2. RITUXIMAB-PVVR [Suspect]
     Active Substance: RITUXIMAB-PVVR
     Indication: Mantle cell lymphoma
     Route: 041
     Dates: start: 20230606, end: 20230606

REACTIONS (5)
  - Chills [None]
  - Tremor [None]
  - Chills [None]
  - Body temperature increased [None]
  - Infusion related reaction [None]

NARRATIVE: CASE EVENT DATE: 20230606
